FAERS Safety Report 8307529-4 (Version None)
Quarter: 2012Q2

REPORT INFORMATION
  Report Type: 
  Country: None (occurrence: None)
  Receive Date: 20120424
  Receipt Date: 20120416
  Transmission Date: 20120825
  Serious: Yes (Other)
  Sender: FDA-Public Use
  Company Number: GB-B.I. PHARMACEUTICALS,INC./RIDGEFIELD-2012-UK-00367UK

PATIENT
  Sex: Male
  Weight: 88 kg

DRUGS (3)
  1. ACETAMINOPHEN AND CODEINE PHOSPHATE [Concomitant]
     Indication: OSTEOARTHRITIS
     Dosage: 2 PRN
     Route: 048
  2. VIRAMUNE [Suspect]
     Indication: HIV INFECTION
     Dosage: 200 MG
     Route: 048
     Dates: start: 20120216, end: 20120309
  3. TRUVADA [Concomitant]
     Indication: HIV INFECTION
     Dosage: 1 NR
     Route: 048
     Dates: start: 20120216

REACTIONS (9)
  - DRUG INTERACTION [None]
  - HALLUCINATION [None]
  - SUICIDAL IDEATION [None]
  - ANXIETY [None]
  - TREMOR [None]
  - SEROTONIN SYNDROME [None]
  - DRUG WITHDRAWAL SYNDROME [None]
  - NIGHTMARE [None]
  - MANIA [None]
